FAERS Safety Report 5043377-9 (Version None)
Quarter: 2006Q2

REPORT INFORMATION
  Report Type: 
  Country: None (occurrence: None)
  Receive Date: 20060601
  Receipt Date: 20060417
  Transmission Date: 20061013
  Serious: No
  Sender: FDA-Public Use
  Company Number: 2006PV009252

PATIENT
  Age: 69 Year
  Sex: Male
  Weight: 114.3065 kg

DRUGS (8)
  1. BYETTA [Suspect]
     Indication: DIABETES MELLITUS NON-INSULIN-DEPENDENT
     Dosage: 5 MCG; BID; SC
     Route: 058
     Dates: start: 20060223
  2. GLUCOPHAGE [Concomitant]
  3. AVANDIA [Concomitant]
  4. AMARYL [Concomitant]
  5. METFORMIN [Concomitant]
  6. NORVASC [Concomitant]
  7. ATENOLOL [Concomitant]
  8. LOTREL [Concomitant]

REACTIONS (2)
  - BLOOD GLUCOSE DECREASED [None]
  - BLOOD PRESSURE INCREASED [None]
